FAERS Safety Report 20799124 (Version 1)
Quarter: 2022Q2

REPORT INFORMATION
  Report Type: Spontaneous
  Country: US (occurrence: US)
  Receive Date: 20220508
  Receipt Date: 20220508
  Transmission Date: 20220721
  Serious: Yes (Hospitalization)
  Sender: FDA-Public Use
  Company Number: US-BRISTOL-MYERS SQUIBB COMPANY-2022-033618

PATIENT
  Age: 85 Year
  Sex: Male
  Weight: 59.42 kg

DRUGS (1)
  1. REVLIMID [Suspect]
     Active Substance: LENALIDOMIDE
     Indication: Plasma cell myeloma
     Dosage: DAILY 1 FOR 21 DAYS ON 7D OFF
     Route: 048
     Dates: start: 20220129

REACTIONS (3)
  - Pyrexia [Recovering/Resolving]
  - Pain [Recovering/Resolving]
  - Cough [Recovering/Resolving]

NARRATIVE: CASE EVENT DATE: 20220325
